FAERS Safety Report 9507541 (Version 1)
Quarter: 2013Q1

REPORT INFORMATION
  Report Type: Spontaneous
  Country: US (occurrence: None)
  Receive Date: 20130305
  Receipt Date: 20130305
  Transmission Date: 20140127
  Serious: Yes (Disabling)
  Sender: FDA-Public Use
  Company Number: 163-20785-12011749

PATIENT
  Age: 75 Year
  Sex: Female

DRUGS (8)
  1. THALOMID [Suspect]
     Indication: PLASMA CELL MYELOMA
     Route: 048
     Dates: start: 200503
  2. REVLIMID (LENALIDOMIDE) (25 MILLIGRAM, CAPSULES) [Suspect]
     Indication: PLASMA CELL MYELOMA
     Route: 048
     Dates: start: 200705
  3. COUMADIN (WARFARIN SODIUM) [Concomitant]
  4. NEUPOGEN (FILGRASTIM) [Concomitant]
  5. PROCRIT [Concomitant]
  6. CYTOXAN (CYCLOPHOSPHAMIDE) [Concomitant]
  7. VELCADE [Concomitant]
  8. ZOMETA (ZOLEDRONIC ACID) [Concomitant]

REACTIONS (3)
  - Neuropathy peripheral [None]
  - Gait disturbance [None]
  - Hypoaesthesia [None]
